FAERS Safety Report 9908321 (Version 1)
Quarter: 2014Q1

REPORT INFORMATION
  Report Type: Spontaneous
  Country: US (occurrence: None)
  Receive Date: 20140212
  Receipt Date: 20140212
  Transmission Date: 20141002
  Serious: No
  Sender: FDA-Public Use
  Company Number: None

PATIENT
  Age: 37 Year
  Sex: Female
  Weight: 79.38 kg

DRUGS (4)
  1. NUVARING [Suspect]
     Indication: ENDOMETRIOSIS
     Dosage: 1 RING 3 WEEKS
  2. NUVARING [Suspect]
     Indication: CONTRACEPTION
     Dosage: 1 RING 3 WEEKS
  3. NUVARING [Suspect]
     Indication: ENDOMETRIOSIS
     Dosage: 1 RING 3 WEEKS
  4. NUVARING [Suspect]
     Indication: CONTRACEPTION
     Dosage: 1 RING 3 WEEKS

REACTIONS (1)
  - Migraine [None]
